FAERS Safety Report 9400036 (Version 1)
Quarter: 2013Q3

REPORT INFORMATION
  Report Type: Spontaneous
  Country: US (occurrence: US)
  Receive Date: 20130715
  Receipt Date: 20130715
  Transmission Date: 20140515
  Serious: Yes (Other)
  Sender: FDA-Public Use
  Company Number: US-PFIZER INC-2013206413

PATIENT
  Age: 49 Year
  Sex: Female
  Weight: 58.96 kg

DRUGS (3)
  1. EFFEXOR XR [Suspect]
     Indication: ANTIDEPRESSANT THERAPY
     Dosage: UNK, 1X/DAY
     Route: 048
     Dates: start: 1992
  2. FLEXERIL [Concomitant]
     Dosage: UNK
  3. CELEXA [Concomitant]
     Indication: DEPRESSION
     Dosage: 40 MG, 1X/DAY

REACTIONS (2)
  - Back disorder [Unknown]
  - Sciatica [Unknown]
